FAERS Safety Report 4922199-0 (Version None)
Quarter: 2006Q1

REPORT INFORMATION
  Report Type: 
  Country: None (occurrence: None)
  Receive Date: 20060224
  Receipt Date: 20050428
  Transmission Date: 20060701
  Serious: Yes (Hospitalization, Disabling)
  Sender: FDA-Public Use
  Company Number: US-MERCK-0505USA00110

PATIENT
  Age: 36 Year
  Sex: Female
  Weight: 77 kg

DRUGS (1)
  1. VIOXX [Suspect]
     Indication: BACK PAIN
     Route: 048
     Dates: start: 20020401, end: 20020423

REACTIONS (4)
  - ADVERSE EVENT [None]
  - CEREBROVASCULAR ACCIDENT [None]
  - MULTI-ORGAN DISORDER [None]
  - PAIN [None]
